FAERS Safety Report 17200690 (Version 1)
Quarter: 2019Q4

REPORT INFORMATION
  Report Type: Spontaneous
  Country: NL (occurrence: NL)
  Receive Date: 20191226
  Receipt Date: 20191226
  Transmission Date: 20200122
  Serious: Yes (Hospitalization)
  Sender: FDA-Public Use
  Company Number: NL-VIIV HEALTHCARE LIMITED-NL2019231070

PATIENT
  Sex: Male
  Weight: 87 kg

DRUGS (5)
  1. ABACAVIR SULFATE + LAMIVUDINE + ZIDOVUDINE [Suspect]
     Active Substance: ABACAVIR SULFATE\LAMIVUDINE\ZIDOVUDINE
     Indication: HIV INFECTION
     Dosage: TABLET, 300/150/300 MG (MILLIGRAM), 1 TIME PER DAY, 1
     Route: 065
     Dates: start: 20181206
  2. PREZISTA [Concomitant]
     Active Substance: DARUNAVIR ETHANOLATE
     Indication: PRODUCT USED FOR UNKNOWN INDICATION
     Dosage: TABLET, 800 MG (MILLIGRAM)
     Route: 065
  3. KALETRA [Concomitant]
     Active Substance: LOPINAVIR\RITONAVIR
     Indication: PRODUCT USED FOR UNKNOWN INDICATION
     Dosage: TABLET, 200/50 MG (MILLIGRAM)
     Route: 065
  4. RITONAVIR. [Concomitant]
     Active Substance: RITONAVIR
     Indication: PRODUCT USED FOR UNKNOWN INDICATION
     Dosage: TABLET, 100 MG (MILLIGRAM)
     Route: 065
  5. TIVICAY [Concomitant]
     Active Substance: DOLUTEGRAVIR SODIUM
     Indication: PRODUCT USED FOR UNKNOWN INDICATION
     Dosage: TABLET, 50 MG (MILLIGRAM)
     Route: 065

REACTIONS (3)
  - Lipids increased [Unknown]
  - Anaemia [Unknown]
  - Blood glucose increased [Unknown]

NARRATIVE: CASE EVENT DATE: 201812
